FAERS Safety Report 10669124 (Version 2)
Quarter: 2015Q1

REPORT INFORMATION
  Report Type: Spontaneous
  Country: US (occurrence: US)
  Receive Date: 20141222
  Receipt Date: 20150206
  Transmission Date: 20150720
  Serious: No
  Sender: FDA-Public Use
  Company Number: US-GLAXOSMITHKLINE-US2014026951

PATIENT
  Age: 76 Year
  Sex: Male

DRUGS (10)
  1. ADVAIR HFA [Concomitant]
     Active Substance: FLUTICASONE PROPIONATE\SALMETEROL XINAFOATE
  2. COMBIVENT [Concomitant]
     Active Substance: ALBUTEROL SULFATE\IPRATROPIUM BROMIDE
  3. LOVAZA [Suspect]
     Active Substance: OMEGA-3-ACID ETHYL ESTERS
     Indication: BLOOD TRIGLYCERIDES ABNORMAL
     Dosage: UNK, BID
     Route: 048
     Dates: start: 2009
  4. CLOPIDOGREL [Concomitant]
     Active Substance: CLOPIDOGREL BISULFATE
  5. AMLODIPINE [Concomitant]
     Active Substance: AMLODIPINE BESYLATE
  6. NIZATIDINE. [Concomitant]
     Active Substance: NIZATIDINE
  7. LOVAZA [Suspect]
     Active Substance: OMEGA-3-ACID ETHYL ESTERS
     Dosage: UNK
  8. BUSPIRONE [Concomitant]
     Active Substance: BUSPIRONE HYDROCHLORIDE
  9. IRBESARTAN. [Concomitant]
     Active Substance: IRBESARTAN
  10. PRAVASTATIN [Concomitant]
     Active Substance: PRAVASTATIN\PRAVASTATIN SODIUM

REACTIONS (2)
  - Product quality issue [Unknown]
  - Dysphagia [Unknown]

NARRATIVE: CASE EVENT DATE: 201407
